FAERS Safety Report 9316693 (Version 3)
Quarter: 2013Q4

REPORT INFORMATION
  Report Type: Report from Study
  Country: CA (occurrence: CA)
  Receive Date: 20130530
  Receipt Date: 20131121
  Transmission Date: 20140711
  Serious: Yes (Hospitalization, Other)
  Sender: FDA-Public Use
  Company Number: CA-JNJFOC-20130518051

PATIENT
  Age: 59 Year
  Sex: Male
  Weight: 70 kg

DRUGS (3)
  1. REMICADE [Suspect]
     Indication: CROHN^S DISEASE
     Route: 042
     Dates: start: 20130504
  2. REMICADE [Suspect]
     Indication: CROHN^S DISEASE
     Dosage: 2ND DOSE (0-2-6)
     Route: 042
     Dates: start: 20130529, end: 20130529
  3. ACETAMINOPHEN [Concomitant]
     Indication: PREMEDICATION
     Dosage: ADMINISTERED AT 12:30 HOURS
     Route: 048
     Dates: start: 20130529

REACTIONS (9)
  - Herpes zoster [Unknown]
  - Blood pressure decreased [Recovered/Resolved]
  - Infusion related reaction [Recovered/Resolved]
  - Tachycardia [Recovered/Resolved]
  - Chest pain [Recovered/Resolved]
  - Hyperhidrosis [Recovered/Resolved]
  - Palpitations [Recovered/Resolved]
  - Pallor [Recovered/Resolved]
  - Abdominal pain upper [Recovered/Resolved]
